FAERS Safety Report 16481265 (Version 1)
Quarter: 2019Q2

REPORT INFORMATION
  Report Type: Spontaneous
  Country: BR (occurrence: BR)
  Receive Date: 20190626
  Receipt Date: 20190626
  Transmission Date: 20190711
  Serious: Yes (Other)
  Sender: FDA-Public Use
  Company Number: BR-ASTRAZENECA-2019SE92042

PATIENT
  Age: 22080 Day
  Sex: Female

DRUGS (1)
  1. FASENRA [Suspect]
     Active Substance: BENRALIZUMAB
     Indication: ASTHMA
     Dosage: 30.0MG/ML UNKNOWN
     Route: 058
     Dates: start: 20181207

REACTIONS (1)
  - Actinic keratosis [Not Recovered/Not Resolved]

NARRATIVE: CASE EVENT DATE: 20190104
